FAERS Safety Report 18691068 (Version 1)
Quarter: 2021Q1

REPORT INFORMATION
  Report Type: Other
  Country: DE (occurrence: DE)
  Receive Date: 20210101
  Receipt Date: 20210101
  Transmission Date: 20210419
  Serious: No
  Sender: FDA-Public Use
  Company Number: DE-LUPIN PHARMACEUTICALS INC.-2020-02353

PATIENT
  Age: 26 Year
  Sex: Male
  Weight: 90 kg

DRUGS (1)
  1. SERTRALINE [Suspect]
     Active Substance: SERTRALINE HYDROCHLORIDE
     Indication: DEPRESSION
     Dosage: 100 MILLIGRAM, UNK
     Route: 048
     Dates: start: 20150312, end: 20170712

REACTIONS (4)
  - Male sexual dysfunction [Not Recovered/Not Resolved]
  - Insomnia [Not Recovered/Not Resolved]
  - Loss of libido [Not Recovered/Not Resolved]
  - Dysaesthesia [Not Recovered/Not Resolved]

NARRATIVE: CASE EVENT DATE: 20170710
